FAERS Safety Report 9436492 (Version 1)
Quarter: 2013Q3

REPORT INFORMATION
  Report Type: Report from Study
  Country: US (occurrence: US)
  Receive Date: 20130802
  Receipt Date: 20130802
  Transmission Date: 20140515
  Serious: Yes (Hospitalization)
  Sender: FDA-Public Use
  Company Number: US-ROCHE-1256234

PATIENT
  Sex: Female

DRUGS (1)
  1. XELODA [Suspect]
     Indication: PRODUCT USED FOR UNKNOWN INDICATION
     Dosage: 21 DAYS ON AND 7 DAYS OFF
     Route: 048

REACTIONS (2)
  - Blood glucose decreased [Not Recovered/Not Resolved]
  - Diabetic coma [Not Recovered/Not Resolved]
